FAERS Safety Report 19846351 (Version 2)
Quarter: 2021Q3

REPORT INFORMATION
  Report Type: Spontaneous
  Country: US (occurrence: US)
  Receive Date: 20210916
  Receipt Date: 20210922
  Transmission Date: 20211014
  Serious: No
  Sender: FDA-Public Use
  Company Number: US-AMGEN-USASP2021141582

PATIENT
  Age: 50 Year
  Sex: Female

DRUGS (2)
  1. MVASI [Suspect]
     Active Substance: BEVACIZUMAB-AWWB
     Indication: MESOTHELIOMA
     Dosage: 400 MILLIGRAM
     Route: 065
     Dates: start: 20210707
  2. MVASI [Suspect]
     Active Substance: BEVACIZUMAB-AWWB
     Dosage: 100 MILLIGRAM
     Route: 065

REACTIONS (1)
  - Circumstance or information capable of leading to medication error [Unknown]
